FAERS Safety Report 20917216 (Version 1)
Quarter: 2022Q2

REPORT INFORMATION
  Report Type: Spontaneous
  Country: NL (occurrence: None)
  Receive Date: 20220606
  Receipt Date: 20220606
  Transmission Date: 20220721
  Serious: Yes (Life-Threatening)
  Sender: FDA-Public Use
  Company Number: None

PATIENT
  Sex: Female
  Weight: 76 kg

DRUGS (7)
  1. CAPECITABINE [Suspect]
     Active Substance: CAPECITABINE
     Indication: Rectal cancer
     Dosage: 2DD 2000MG MOST RECENT DOSE ADMINISTERED ON 06/MAY/2022
     Route: 048
     Dates: start: 20220422, end: 20220506
  2. OXALIPLATIN [Suspect]
     Active Substance: OXALIPLATIN
     Indication: Rectal cancer
     Dosage: 1DD 258MG IN GLUCOSE 5%, MOST RECENT DOSE ADMINISTERED ON 06/MAY/2022
     Route: 065
     Dates: start: 20220422
  3. DEXAMETHASONE [Concomitant]
     Active Substance: DEXAMETHASONE
     Dosage: INJECTIEVLOEISTOF, 4 MG/ML (MILLIGRAM PER MILLILITER)
  4. PANTOPRAZOLE SODIUM [Concomitant]
     Active Substance: PANTOPRAZOLE SODIUM
     Dosage: MAAGSAPRESISTENTE TABLET, 40 MG (MILLIGRAM)
  5. NADROPARIN [Concomitant]
     Active Substance: NADROPARIN
     Dosage: INJECTIEVLOEISTOF, 9500 IE/ML (EENHEDEN PER MILLILITER)
  6. ETORICOXIB [Concomitant]
     Active Substance: ETORICOXIB
     Dosage: FILMOMHULDE TABLET, 60 MG (MILLIGRAM)
  7. PREGABALIN [Concomitant]
     Active Substance: PREGABALIN
     Dosage: CAPSULE, 75 MG (MILLIGRAM)

REACTIONS (4)
  - Hypokalaemia [Recovering/Resolving]
  - Mucosal inflammation [Recovering/Resolving]
  - Ileus [Recovering/Resolving]
  - Acute kidney injury [Recovering/Resolving]
